FAERS Safety Report 5737847-5 (Version None)
Quarter: 2008Q2

REPORT INFORMATION
  Report Type: 
  Country: None (occurrence: None)
  Receive Date: 20080512
  Receipt Date: 20080512
  Transmission Date: 20081010
  Serious: Yes (Other)
  Sender: FDA-Public Use
  Company Number: None

PATIENT
  Age: 61 Year
  Sex: Female
  Weight: 61.2356 kg

DRUGS (1)
  1. PLAVIX [Suspect]
     Indication: STENT PLACEMENT
     Dosage: 75MG         1 DAILY
     Dates: start: 20080126, end: 20080129

REACTIONS (5)
  - DERMATITIS ALLERGIC [None]
  - FEELING ABNORMAL [None]
  - FEELING HOT [None]
  - PRURITUS [None]
  - SLEEP DISORDER [None]
